FAERS Safety Report 6677466-X (Version None)
Quarter: 2010Q2

REPORT INFORMATION
  Report Type: 
  Country: None (occurrence: None)
  Receive Date: 20100412
  Receipt Date: 20100408
  Transmission Date: 20101027
  Serious: Yes (Hospitalization)
  Sender: FDA-Public Use
  Company Number: A0854166A

PATIENT
  Age: 69 Year
  Sex: Male

DRUGS (10)
  1. VOTRIENT [Suspect]
     Dosage: 400MG TWICE PER DAY
     Route: 048
     Dates: start: 20100330
  2. OXYCONTIN [Concomitant]
  3. OXYCODONE [Concomitant]
  4. DOXYCYCLINE [Concomitant]
  5. COUMADIN [Concomitant]
  6. HYDROCORTISONE [Concomitant]
  7. DIGOXIN [Concomitant]
  8. AMIODARONE HCL [Concomitant]
  9. MODRASONE [Concomitant]
  10. CARVEDILOL [Concomitant]
     Dosage: 3.125MG TWICE PER DAY

REACTIONS (4)
  - BACK PAIN [None]
  - CHEST PAIN [None]
  - NECK PAIN [None]
  - TOOTHACHE [None]
